FAERS Safety Report 26050517 (Version 2)
Quarter: 2025Q4

REPORT INFORMATION
  Report Type: Report from Study
  Country: US (occurrence: US)
  Receive Date: 20251116
  Receipt Date: 20251205
  Transmission Date: 20260117
  Serious: Yes (Hospitalization, Other)
  Sender: CSL BEHRING
  Company Number: US-BEH-2025224677

PATIENT
  Age: 27 Year
  Sex: Female

DRUGS (2)
  1. GARADACIMAB [Suspect]
     Active Substance: GARADACIMAB
     Indication: Hereditary angioedema
     Dosage: 200 MG
     Route: 058
  2. GARADACIMAB [Suspect]
     Active Substance: GARADACIMAB
     Indication: Prophylaxis
     Dosage: 200 MG, QMT
     Route: 058
     Dates: start: 20251101, end: 20251101

REACTIONS (12)
  - Hereditary angioedema [Recovering/Resolving]
  - Hereditary angioedema [Unknown]
  - Hereditary angioedema [Unknown]
  - Anaphylactic reaction [Unknown]
  - Drug ineffective [Unknown]
  - Chest pain [Unknown]
  - Back pain [Unknown]
  - Hyperhidrosis [Unknown]
  - Pyrexia [Not Recovered/Not Resolved]
  - Pain [Not Recovered/Not Resolved]
  - Nausea [Unknown]
  - Chills [Unknown]

NARRATIVE: CASE EVENT DATE: 20251101
